FAERS Safety Report 15100851 (Version 4)
Quarter: 2018Q3

REPORT INFORMATION
  Report Type: Report from Study
  Country: PL (occurrence: PL)
  Receive Date: 20180703
  Receipt Date: 20180719
  Transmission Date: 20181010
  Serious: Yes (Death, Hospitalization)
  Sender: FDA-Public Use
  Company Number: PL-EISAI MEDICAL RESEARCH-EC-2018-042124

PATIENT
  Age: 67 Year
  Sex: Male
  Weight: 90 kg

DRUGS (10)
  1. EVEROLIMUS. [Suspect]
     Active Substance: EVEROLIMUS
     Indication: RENAL CELL CARCINOMA
     Route: 048
     Dates: start: 20180518, end: 20180625
  2. HEPAREGEN [Concomitant]
  3. CALCIUM POLFA [Concomitant]
  4. BISOCARD [Concomitant]
     Active Substance: BISOPROLOL
  5. TRITACE [Concomitant]
     Active Substance: RAMIPRIL
  6. ATORIS [Concomitant]
     Active Substance: ATORVASTATIN CALCIUM
  7. PROSTAMIC [Concomitant]
  8. LENVATINIB [Suspect]
     Active Substance: LENVATINIB
     Indication: RENAL CELL CARCINOMA
     Dosage: BLINDED DOSAGE
     Dates: start: 20180518, end: 20180625
  9. EUTHYROX [Concomitant]
     Active Substance: LEVOTHYROXINE SODIUM
  10. CLEXANE [Concomitant]
     Active Substance: ENOXAPARIN SODIUM

REACTIONS (1)
  - Diarrhoea [Fatal]

NARRATIVE: CASE EVENT DATE: 20180625
